FAERS Safety Report 17440249 (Version 1)
Quarter: 2020Q1

REPORT INFORMATION
  Report Type: Spontaneous
  Country: US (occurrence: US)
  Receive Date: 20200220
  Receipt Date: 20200220
  Transmission Date: 20200409
  Serious: No
  Sender: FDA-Public Use
  Company Number: US-PFIZER INC-2020075690

PATIENT
  Age: 63 Year
  Sex: Female
  Weight: 133.79 kg

DRUGS (1)
  1. IBRANCE [Suspect]
     Active Substance: PALBOCICLIB
     Indication: BREAST CANCER FEMALE
     Dosage: 125 MG, CYCLIC (DAILY ON DAYS 1-21 EVERY 28 DAYS)
     Route: 048
     Dates: start: 20200106

REACTIONS (1)
  - Decreased appetite [Recovering/Resolving]
